FAERS Safety Report 6971393-6 (Version None)
Quarter: 2010Q3

REPORT INFORMATION
  Report Type: 
  Country: None (occurrence: None)
  Receive Date: 20100908
  Receipt Date: 20100825
  Transmission Date: 20110219
  Serious: Yes (Hospitalization)
  Sender: FDA-Public Use
  Company Number: ES-MYLANLABS-2010S1015526

PATIENT
  Age: 65 Year
  Sex: Female

DRUGS (4)
  1. COTRIM [Suspect]
     Indication: URINARY TRACT INFECTION
     Dosage: TRIMETHOPRIN + SULFAMETHOXAZOLE 80 MG/400 MG EVERY 12 HOURS
     Route: 048
  2. LEVOFLOXACIN [Suspect]
     Indication: PNEUMONIA
     Dosage: 500 MG EVERY 24 HOURS
     Route: 048
  3. DOXYCYCLINE [Suspect]
     Indication: PNEUMONIA
     Dosage: 100 MG EVERY 12 HOURS
     Route: 048
  4. SERTRALINE HYDROCHLORIDE [Suspect]
     Indication: AFFECTIVE DISORDER
     Dosage: 50 MG EVERY 24 HOURS
     Route: 065

REACTIONS (1)
  - HEPATITIS [None]
